FAERS Safety Report 5815847-4 (Version None)
Quarter: 2008Q3

REPORT INFORMATION
  Report Type: 
  Country: None (occurrence: None)
  Receive Date: 20080721
  Receipt Date: 20080721
  Transmission Date: 20090109
  Serious: Yes (Life-Threatening, Hospitalization, Disabling, Other)
  Sender: FDA-Public Use
  Company Number: None

PATIENT
  Age: 71 Year
  Sex: Female
  Weight: 53.978 kg

DRUGS (2)
  1. HEPARIN [Suspect]
     Indication: ATRIAL FIBRILLATION
     Dosage: HEPARIN INFUSIONS IV BOLUS
     Route: 040
     Dates: start: 20071108, end: 20071231
  2. HEPARIN [Suspect]
     Indication: BLOOD DISORDER
     Dosage: HEPARIN INFUSIONS IV BOLUS
     Route: 040
     Dates: start: 20071108, end: 20071231

REACTIONS (6)
  - BEDRIDDEN [None]
  - DISEASE COMPLICATION [None]
  - DRUG HYPERSENSITIVITY [None]
  - HEPARIN-INDUCED THROMBOCYTOPENIA [None]
  - IMPAIRED SELF-CARE [None]
  - RESPIRATORY DISTRESS [None]
